FAERS Safety Report 4739047-4 (Version None)
Quarter: 2005Q3

REPORT INFORMATION
  Report Type: 
  Country: None (occurrence: None)
  Receive Date: 20050801
  Receipt Date: 20041123
  Transmission Date: 20060218
  Serious: Yes (Hospitalization)
  Sender: FDA-Public Use
  Company Number: 207614

PATIENT
  Age: 72 Year
  Sex: Male
  Weight: 63.5 kg

DRUGS (4)
  1. RITUXAN [Suspect]
     Indication: NON-HODGKIN'S LYMPHOMA
     Dosage: 634 MG, 1/WEEK, INTRAVENOUS
     Route: 042
  2. IFEX [Suspect]
     Dosage: 150 MG/M2
     Dates: start: 20040617
  3. ETOPOSIDE [Suspect]
     Dosage: 100 MG/M2,
     Dates: start: 20040617
  4. CARBOPLATIN [Concomitant]

REACTIONS (2)
  - LEUKOPENIA [None]
  - NEUTROPENIA [None]
